FAERS Safety Report 6000000-4 (Version None)
Quarter: 2008Q4

REPORT INFORMATION
  Report Type: 
  Country: None (occurrence: None)
  Receive Date: 20081211
  Receipt Date: 20080729
  Transmission Date: 20090506
  Serious: No
  Sender: FDA-Public Use
  Company Number: US024222

PATIENT
  Sex: Male

DRUGS (1)
  1. TREANDA [Suspect]
     Indication: NON-HODGKIN'S LYMPHOMA
     Dosage: 100 MG/M2 ONCE INTRAVENOUS
     Route: 042
     Dates: start: 20080711, end: 20080711

REACTIONS (1)
  - SPONTANEOUS PENILE ERECTION [None]
